FAERS Safety Report 19816294 (Version 2)
Quarter: 2022Q1

REPORT INFORMATION
  Report Type: Spontaneous
  Country: JP (occurrence: JP)
  Receive Date: 20210910
  Receipt Date: 20220131
  Transmission Date: 20220424
  Serious: Yes (Hospitalization, Other)
  Sender: FDA-Public Use
  Company Number: JP-UCBSA-2021042335

PATIENT
  Age: 53 Year
  Sex: Female

DRUGS (9)
  1. LEVETIRACETAM [Suspect]
     Active Substance: LEVETIRACETAM
     Indication: Focal dyscognitive seizures
     Dosage: 2000 MILLIGRAM DAILY
     Route: 048
  2. LEVETIRACETAM [Suspect]
     Active Substance: LEVETIRACETAM
     Indication: Temporal lobe epilepsy
     Dosage: 2000 MILLIGRAM, DAILY
     Route: 048
     Dates: start: 201807
  3. PHENYTOIN [Suspect]
     Active Substance: PHENYTOIN
     Indication: Focal dyscognitive seizures
     Dosage: 200 MILLIGRAM DAILY
  4. PHENYTOIN [Suspect]
     Active Substance: PHENYTOIN
     Indication: Temporal lobe epilepsy
     Dosage: 100 MILLIGRAM DAILY
  5. ZONISAMIDE [Suspect]
     Active Substance: ZONISAMIDE
     Indication: Focal dyscognitive seizures
     Dosage: 300 MILLIGRAM DAILY
  6. ZONISAMIDE [Suspect]
     Active Substance: ZONISAMIDE
     Indication: Temporal lobe epilepsy
  7. SERTRALINE [Concomitant]
     Active Substance: SERTRALINE HYDROCHLORIDE
     Indication: Depression
  8. SULPIRIDE [Concomitant]
     Active Substance: SULPIRIDE
     Indication: Depression
  9. FOSPHENYTOIN SODIUM [Concomitant]
     Active Substance: FOSPHENYTOIN SODIUM
     Indication: Epilepsy
     Dosage: 18MG/KG

REACTIONS (11)
  - Epilepsy [Recovered/Resolved]
  - Partial seizures with secondary generalisation [Recovered/Resolved]
  - Cardio-respiratory arrest [Recovering/Resolving]
  - Ventricular tachycardia [Recovering/Resolving]
  - Electrocardiogram QT prolonged [Recovering/Resolving]
  - Multiple organ dysfunction syndrome [Recovering/Resolving]
  - Infection [Recovering/Resolving]
  - Pain in extremity [Unknown]
  - Somnolence [Recovering/Resolving]
  - Multiple-drug resistance [Unknown]
  - Treatment noncompliance [Unknown]

NARRATIVE: CASE EVENT DATE: 20180801
